FAERS Safety Report 8028001-5 (Version None)
Quarter: 2012Q1

REPORT INFORMATION
  Report Type: 
  Country: None (occurrence: None)
  Receive Date: 20120106
  Receipt Date: 20110222
  Transmission Date: 20120608
  Serious: No
  Sender: FDA-Public Use
  Company Number: US-MYLANLABS-2011S1003583

PATIENT
  Age: 53 Year
  Sex: Male

DRUGS (2)
  1. PHENYTOIN SODIUM CAP [Suspect]
     Dates: start: 20101101, end: 20101101
  2. PHENYTOIN SODIUM CAP [Suspect]
     Indication: EPILEPSY
     Dates: start: 20100901, end: 20100901

REACTIONS (6)
  - FATIGUE [None]
  - PARAESTHESIA [None]
  - HYPOAESTHESIA [None]
  - FEELING JITTERY [None]
  - ANXIETY [None]
  - CONFUSIONAL STATE [None]
